FAERS Safety Report 7714215-8 (Version None)
Quarter: 2011Q3

REPORT INFORMATION
  Report Type: 
  Country: None (occurrence: None)
  Receive Date: 20110829
  Receipt Date: 20110819
  Transmission Date: 20111222
  Serious: No
  Sender: FDA-Public Use
  Company Number: US-BIOGENIDEC-2011BI026322

PATIENT
  Sex: Female

DRUGS (1)
  1. TYSABRI [Suspect]
     Indication: MULTIPLE SCLEROSIS
     Route: 042
     Dates: start: 20100728, end: 20110712

REACTIONS (10)
  - PARAESTHESIA [None]
  - CONTUSION [None]
  - FLUID RETENTION [None]
  - INFLUENZA LIKE ILLNESS [None]
  - BLOOD PRESSURE INCREASED [None]
  - THYROID DISORDER [None]
  - PAIN IN EXTREMITY [None]
  - FEELING HOT [None]
  - BLOOD TEST ABNORMAL [None]
  - INFLUENZA [None]
